FAERS Safety Report 17708405 (Version 2)
Quarter: 2020Q2

REPORT INFORMATION
  Report Type: Spontaneous
  Country: IE (occurrence: IE)
  Receive Date: 20200426
  Receipt Date: 20200526
  Transmission Date: 20200714
  Serious: Yes (Other)
  Sender: FDA-Public Use
  Company Number: NVSC2020IE112246

PATIENT
  Sex: Female

DRUGS (4)
  1. SALAZOPYRIN [Concomitant]
     Active Substance: SULFASALAZINE
     Indication: ARTHRITIS
     Dosage: 1 DF, TID
     Route: 065
  2. COSENTYX [Suspect]
     Active Substance: SECUKINUMAB
     Indication: PSORIATIC ARTHROPATHY
     Dosage: 2 DF, TWICE A MONTH
     Route: 058
     Dates: end: 201911
  3. SALAZOPYRIN [Concomitant]
     Active Substance: SULFASALAZINE
     Dosage: 1 DF, QID
     Route: 065
  4. COSENTYX [Suspect]
     Active Substance: SECUKINUMAB
     Indication: RHEUMATOID ARTHRITIS

REACTIONS (5)
  - Drug ineffective [Recovering/Resolving]
  - Inappropriate schedule of product administration [Unknown]
  - Skin haemorrhage [Recovering/Resolving]
  - Psoriasis [Recovering/Resolving]
  - Pruritus [Recovering/Resolving]
